FAERS Safety Report 15738701 (Version 3)
Quarter: 2019Q1

REPORT INFORMATION
  Report Type: Spontaneous
  Country: CN (occurrence: CN)
  Receive Date: 20181219
  Receipt Date: 20190213
  Transmission Date: 20190417
  Serious: Yes (Life-Threatening, Hospitalization)
  Sender: FDA-Public Use
  Company Number: CN-TAKEDA-2018MPI016831

PATIENT
  Age: 73 Year
  Sex: Female
  Weight: 67 kg

DRUGS (8)
  1. METOPROLOL. [Concomitant]
     Active Substance: METOPROLOL
     Indication: HYPERTENSION
     Dosage: 6.25 MILLIGRAM, QD
     Route: 065
  2. ISOSORBIDE MONONITRATE. [Concomitant]
     Active Substance: ISOSORBIDE MONONITRATE
     Dosage: 25 MILLIGRAM, QD
     Route: 042
  3. VELCADE [Suspect]
     Active Substance: BORTEZOMIB
     Indication: PLASMA CELL MYELOMA
     Dosage: 1.7 MILLIGRAM
     Route: 058
     Dates: start: 20180821, end: 20181130
  4. DARATUMUMAB [Suspect]
     Active Substance: DARATUMUMAB
     Indication: PLASMA CELL MYELOMA
     Dosage: 1072 MILLIGRAM
     Route: 042
     Dates: start: 20180821, end: 20181123
  5. DEXAMETHASONE. [Suspect]
     Active Substance: DEXAMETHASONE
     Indication: PLASMA CELL MYELOMA
     Dosage: 20 MILLIGRAM
     Route: 048
     Dates: start: 20180821, end: 20181124
  6. ASPIRIN                            /00002701/ [Concomitant]
     Active Substance: ASPIRIN
     Indication: CORONARY ARTERY DISEASE
     Dosage: 75 MILLIGRAM, QD
     Route: 065
  7. ISOSORBIDE MONONITRATE. [Concomitant]
     Active Substance: ISOSORBIDE MONONITRATE
     Indication: CORONARY ARTERY DISEASE
     Dosage: 20 MILLIGRAM, TID
     Route: 048
  8. CEFTAZIDIME. [Concomitant]
     Active Substance: CEFTAZIDIME
     Indication: LUNG INFECTION
     Dosage: 2 GRAM
     Route: 042

REACTIONS (3)
  - Neurotoxicity [Not Recovered/Not Resolved]
  - Hypokalaemia [Recovered/Resolved]
  - Hyponatraemia [Recovering/Resolving]

NARRATIVE: CASE EVENT DATE: 201812
